FAERS Safety Report 8058802-9 (Version None)
Quarter: 2012Q1

REPORT INFORMATION
  Report Type: 
  Country: None (occurrence: None)
  Receive Date: 20120119
  Receipt Date: 20120119
  Transmission Date: 20120608
  Serious: Yes (Hospitalization)
  Sender: FDA-Public Use
  Company Number: None

PATIENT
  Age: 55 Year
  Sex: Female
  Weight: 74 kg

DRUGS (2)
  1. CALCIUM CARBONATE [Concomitant]
  2. ASPIRIN [Suspect]
     Dosage: PRN PO CHRONIC
     Route: 048

REACTIONS (3)
  - ANAEMIA [None]
  - URTICARIA [None]
  - DUODENAL ULCER [None]
